FAERS Safety Report 9450761 (Version 1)
Quarter: 2013Q3

REPORT INFORMATION
  Report Type: Spontaneous
  Country: US (occurrence: US)
  Receive Date: 20130809
  Receipt Date: 20130809
  Transmission Date: 20140515
  Serious: No
  Sender: FDA-Public Use
  Company Number: US-AMGEN-USASP2013004371

PATIENT
  Age: 2 Year
  Sex: Female

DRUGS (7)
  1. NEUPOGEN [Suspect]
     Indication: NEUTROPENIA
     Dosage: 50 MUG, UNK
     Route: 058
  2. BACTRIM [Suspect]
     Dosage: UNK
  3. CISPLATIN [Concomitant]
     Indication: RETROPERITONEAL CANCER
     Dosage: UNK
  4. CYCLOPHOSPHAMIDE [Concomitant]
     Indication: RETROPERITONEAL CANCER
     Dosage: UNK
  5. ETOPOSIDE [Concomitant]
     Indication: RETROPERITONEAL CANCER
     Dosage: UNK
  6. TOPOTECAN [Concomitant]
     Indication: RETROPERITONEAL CANCER
     Dosage: UNK
  7. RANITIDINE [Concomitant]
     Dosage: UNK

REACTIONS (1)
  - Rash [Unknown]
